FAERS Safety Report 4949251-8 (Version None)
Quarter: 2006Q1

REPORT INFORMATION
  Report Type: 
  Country: None (occurrence: None)
  Receive Date: 20060321
  Receipt Date: 20060222
  Transmission Date: 20060701
  Serious: Yes (Hospitalization, Other)
  Sender: FDA-Public Use
  Company Number: PHBS2006JP03034

PATIENT
  Age: 14 Year
  Sex: Male

DRUGS (8)
  1. 9-(1,3-DIHYDROXY-2-PROPROXYMETHYL) GUANINE DHPG [Suspect]
  2. FOSCARNET [Suspect]
     Indication: PNEUMONIA CYTOMEGALOVIRAL
     Dates: start: 20050804, end: 20050822
  3. NEORAL [Suspect]
     Indication: BONE MARROW TRANSPLANT
     Dosage: 300 MG/D
     Route: 048
     Dates: start: 20050816, end: 20051010
  4. SANDIMMUNE [Suspect]
     Indication: BONE MARROW TRANSPLANT
     Dosage: 10 MG/D
     Route: 042
     Dates: start: 20050703, end: 20050815
  5. METHOTREXATE [Suspect]
     Indication: BONE MARROW TRANSPLANT
  6. BUSULFAN [Suspect]
     Dosage: 4 MG/KG/DAY
     Dates: start: 20050625
  7. CYCLOPHOSPHAMIDE [Suspect]
     Dosage: 60 MG/KG/DAY
     Dates: start: 20050625
  8. L-PAM [Suspect]
     Dosage: 70 MG/M2/DAY
     Dates: start: 20050625

REACTIONS (33)
  - BLISTER [None]
  - BLOOD BILIRUBIN INCREASED [None]
  - BLOOD ELECTROLYTES ABNORMAL [None]
  - BLOOD LACTATE DEHYDROGENASE INCREASED [None]
  - CATHETER RELATED INFECTION [None]
  - COAGULATION TEST ABNORMAL [None]
  - COUGH [None]
  - CYST [None]
  - CYTOMEGALOVIRUS VIRAEMIA [None]
  - DERMATITIS [None]
  - DIARRHOEA [None]
  - DRY SKIN [None]
  - FEBRILE NEUTROPENIA [None]
  - FIBRIN D DIMER INCREASED [None]
  - GRAFT VERSUS HOST DISEASE [None]
  - HAEMATOCHEZIA [None]
  - HAPTOGLOBIN INCREASED [None]
  - HYPOKALAEMIA [None]
  - LUNG DISORDER [None]
  - LYMPHOCYTE PERCENTAGE INCREASED [None]
  - NEUTROPHIL PERCENTAGE INCREASED [None]
  - OEDEMA PERIPHERAL [None]
  - OSTEOPOROSIS [None]
  - PLATELET COUNT DECREASED [None]
  - PNEUMONIA CYTOMEGALOVIRAL [None]
  - PYREXIA [None]
  - RASH [None]
  - RENAL DISORDER [None]
  - STOMATITIS [None]
  - THROMBOTIC MICROANGIOPATHY [None]
  - VENOOCCLUSIVE LIVER DISEASE [None]
  - WHITE BLOOD CELL COUNT DECREASED [None]
  - WHITE BLOOD CELL COUNT INCREASED [None]
